FAERS Safety Report 21045806 (Version 2)
Quarter: 2022Q3

REPORT INFORMATION
  Report Type: Spontaneous
  Country: CA (occurrence: CA)
  Receive Date: 20220706
  Receipt Date: 20220803
  Transmission Date: 20221027
  Serious: Yes (Hospitalization, Other)
  Sender: FDA-Public Use
  Company Number: CA-JNJFOC-20220702044

PATIENT
  Age: 26 Year
  Sex: Female

DRUGS (2)
  1. REMICADE [Suspect]
     Active Substance: INFLIXIMAB
     Indication: Crohn^s disease
     Route: 041
  2. VEDOLIZUMAB [Concomitant]
     Active Substance: VEDOLIZUMAB

REACTIONS (9)
  - Cervical friability [Unknown]
  - Incontinence [Unknown]
  - Ulcer [Unknown]
  - Crohn^s disease [Unknown]
  - COVID-19 [Unknown]
  - Disease recurrence [Unknown]
  - Frequent bowel movements [Unknown]
  - Treatment failure [Unknown]
  - Off label use [Unknown]
